FAERS Safety Report 8209491-1 (Version None)
Quarter: 2012Q1

REPORT INFORMATION
  Report Type: 
  Country: None (occurrence: None)
  Receive Date: 20120314
  Receipt Date: 20120309
  Transmission Date: 20120608
  Serious: No
  Sender: FDA-Public Use
  Company Number: US-PFIZER INC-2012063621

PATIENT
  Sex: Male

DRUGS (1)
  1. LATANOPROST [Suspect]
     Dosage: ONE DROP IN RIGHT EYE ONCE A DAY
     Route: 047
     Dates: start: 20110701, end: 20120309

REACTIONS (1)
  - EYE IRRITATION [None]
